FAERS Safety Report 8856313 (Version 3)
Quarter: 2013Q2

REPORT INFORMATION
  Report Type: Spontaneous
  Country: JP (occurrence: None)
  Receive Date: 20121018
  Receipt Date: 20130410
  Transmission Date: 20140414
  Serious: Yes (Hospitalization)
  Sender: FDA-Public Use
  Company Number: TPA2012A08087

PATIENT
  Age: 79 Year
  Sex: Male

DRUGS (18)
  1. FEBURIC (FEBUXOSTAT) [Suspect]
     Indication: URATE NEPHROPATHY
     Dosage: 10 MG (10 MG, 1-2) 1 GM
     Dates: start: 20120803, end: 20120904
  2. ROCEPHIN [Suspect]
     Indication: C-REACTIVE PROTEIN INCREASED
     Dates: start: 20120908, end: 20120909
  3. CEFAZOLIN (CEFAZOLIN) [Suspect]
     Indication: C-REACTIVE PROTEIN INCREASED
     Dates: start: 20120904, end: 20120907
  4. ALESION (EPINASTINE HYDROCHLORIDE) [Concomitant]
  5. MIRCERA [Concomitant]
  6. MUCOSTA [Concomitant]
  7. KALIMATE [Concomitant]
  8. CRESTOR [Concomitant]
  9. CERCINE [Concomitant]
  10. GASTER D [Concomitant]
  11. LENDORMIN [Concomitant]
  12. BIO-THREE [Concomitant]
  13. LASIX [Concomitant]
  14. FERO-GRADUMET [Concomitant]
  15. JUSO [Concomitant]
  16. KREMEZIN [Concomitant]
  17. SENNOSIDE [Concomitant]
  18. SUVENYL (HYALURONATE SODIUM) [Concomitant]

REACTIONS (5)
  - Toxic epidermal necrolysis [None]
  - Head injury [None]
  - Periarthritis [None]
  - Pyrexia [None]
  - Drug ineffective [None]
